FAERS Safety Report 13862922 (Version 3)
Quarter: 2018Q1

REPORT INFORMATION
  Report Type: Spontaneous
  Country: US (occurrence: US)
  Receive Date: 20170814
  Receipt Date: 20180308
  Transmission Date: 20180508
  Serious: No
  Sender: FDA-Public Use
  Company Number: US-ASTRAZENECA-2017SE81028

PATIENT
  Age: 26323 Day
  Sex: Female
  Weight: 83.9 kg

DRUGS (1)
  1. BYDUREON [Suspect]
     Active Substance: EXENATIDE
     Indication: TYPE 2 DIABETES MELLITUS
     Route: 058
     Dates: start: 20160709

REACTIONS (10)
  - Underdose [Unknown]
  - Fluid retention [Unknown]
  - Device malfunction [Unknown]
  - Injection site mass [Unknown]
  - Arthritis [Unknown]
  - Device leakage [Unknown]
  - Renal disorder [Unknown]
  - Wrong technique in device usage process [Unknown]
  - Gout [Unknown]
  - Complication associated with device [Unknown]

NARRATIVE: CASE EVENT DATE: 20160709
